FAERS Safety Report 11685062 (Version 2)
Quarter: 2015Q4

REPORT INFORMATION
  Report Type: Spontaneous
  Country: US (occurrence: US)
  Receive Date: 20151030
  Receipt Date: 20151231
  Transmission Date: 20160304
  Serious: Yes (Hospitalization, Other)
  Sender: FDA-Public Use
  Company Number: US-009507513-1510USA014435

PATIENT
  Age: 71 Year
  Sex: Female
  Weight: 55 kg

DRUGS (2)
  1. FOSAMAX [Suspect]
     Active Substance: ALENDRONATE SODIUM
     Indication: OSTEOPOROSIS
     Dosage: UNK UNK, HS
     Route: 048
     Dates: start: 2002
  2. LIPITOR [Suspect]
     Active Substance: ATORVASTATIN CALCIUM
     Indication: BLOOD CHOLESTEROL INCREASED
     Dosage: 10 MG  ONCE A DAY EVERY MORNING
     Route: 048
     Dates: start: 2000, end: 20150809

REACTIONS (6)
  - Dysphagia [Not Recovered/Not Resolved]
  - Lip and/or oral cavity cancer [Recovered/Resolved]
  - Oral pain [Not Recovered/Not Resolved]
  - Jaw operation [Unknown]
  - Movement disorder [Unknown]
  - Oral discomfort [Not Recovered/Not Resolved]

NARRATIVE: CASE EVENT DATE: 20080522
